FAERS Safety Report 8508433-9 (Version None)
Quarter: 2012Q3

REPORT INFORMATION
  Report Type: 
  Country: None (occurrence: None)
  Receive Date: 20120713
  Receipt Date: 20120706
  Transmission Date: 20120928
  Serious: Yes (Other)
  Sender: FDA-Public Use
  Company Number: GB-JNJFOC-20120408744

PATIENT

DRUGS (6)
  1. DOXORUBICIN HCL [Suspect]
     Indication: B-CELL LYMPHOMA
     Dosage: 6-821 DAY CYCLES; N=28
     Route: 042
  2. CYCLOPHOSPHAMIDE [Suspect]
     Indication: B-CELL LYMPHOMA
     Route: 065
  3. PREDNISONE [Suspect]
     Indication: B-CELL LYMPHOMA
     Route: 065
  4. DOXORUBICIN HCL [Suspect]
     Dosage: 6-821 DAY CYCLES; N=28
     Route: 065
  5. OBINUTUZUMAB [Suspect]
     Indication: B-CELL LYMPHOMA
     Route: 065
  6. VINCRISTINE [Suspect]
     Indication: B-CELL LYMPHOMA
     Route: 065

REACTIONS (4)
  - NEUTROPENIA [None]
  - NEUROPATHY PERIPHERAL [None]
  - INFECTION [None]
  - INFUSION RELATED REACTION [None]
